FAERS Safety Report 24701224 (Version 3)
Quarter: 2025Q3

REPORT INFORMATION
  Report Type: Spontaneous
  Country: US (occurrence: US)
  Receive Date: 20241205
  Receipt Date: 20250810
  Transmission Date: 20251021
  Serious: No
  Sender: ALEXION PHARMACEUTICALS
  Company Number: US-AstraZeneca-CH-00753523AP

PATIENT
  Sex: Female

DRUGS (1)
  1. TEZSPIRE [Suspect]
     Active Substance: TEZEPELUMAB-EKKO
     Route: 065

REACTIONS (4)
  - Incorrect dose administered by device [Unknown]
  - Device leakage [Unknown]
  - Product quality control issue [Unknown]
  - Asthenia [Unknown]
